FAERS Safety Report 9312603 (Version 1)
Quarter: 2013Q2

REPORT INFORMATION
  Report Type: Report from Study
  Country: JP (occurrence: JP)
  Receive Date: 20130528
  Receipt Date: 20130528
  Transmission Date: 20140414
  Serious: Yes (Other)
  Sender: FDA-Public Use
  Company Number: JP-GLAXOSMITHKLINE-B0870837A

PATIENT
  Age: 69 Year
  Sex: Male
  Weight: 81 kg

DRUGS (14)
  1. ARRANON [Suspect]
     Indication: T-CELL PROLYMPHOCYTIC LEUKAEMIA
     Dosage: 1200MGM2 ALTERNATE DAYS
     Route: 042
     Dates: start: 20120820, end: 20120822
  2. ARRANON [Suspect]
     Indication: T-CELL PROLYMPHOCYTIC LEUKAEMIA
     Dosage: 900MGM2 ALTERNATE DAYS
     Route: 042
     Dates: start: 20120920, end: 20120922
  3. ARRANON [Suspect]
     Indication: T-CELL PROLYMPHOCYTIC LEUKAEMIA
     Dosage: 900MGM2 ALTERNATE DAYS
     Route: 042
     Dates: start: 20121025, end: 20121027
  4. ARRANON [Suspect]
     Indication: T-CELL PROLYMPHOCYTIC LEUKAEMIA
     Dosage: 900MGM2 ALTERNATE DAYS
     Route: 042
     Dates: start: 20121128, end: 20121130
  5. ALLEGRA [Concomitant]
     Route: 048
     Dates: start: 20120622
  6. TAKEPRON [Concomitant]
     Indication: PROPHYLAXIS
     Route: 048
     Dates: start: 20120622
  7. FEBURIC [Concomitant]
     Indication: PROPHYLAXIS
     Route: 048
     Dates: start: 20120622
  8. ITRIZOLE [Concomitant]
     Indication: PROPHYLAXIS
     Route: 048
     Dates: start: 20120628
  9. BAKTAR [Concomitant]
     Indication: PROPHYLAXIS
     Route: 048
     Dates: start: 20120629
  10. BIOFERMIN R [Concomitant]
     Indication: PROPHYLAXIS
     Route: 048
     Dates: start: 20120629
  11. FUROSEMIDE [Concomitant]
     Indication: RENAL FAILURE
     Route: 048
     Dates: start: 20120704
  12. SAMSCA [Concomitant]
     Indication: RENAL FAILURE
     Route: 048
     Dates: start: 20120629
  13. DIFLUCAN [Concomitant]
     Indication: PROPHYLAXIS
     Route: 048
     Dates: start: 20120622, end: 20120726
  14. FLUDARABINE PHOSPHATE [Concomitant]
     Dosage: 14MGM2 PER DAY
     Route: 042

REACTIONS (9)
  - Altered state of consciousness [Recovered/Resolved]
  - Neuropathy peripheral [Recovered/Resolved]
  - Somnolence [Recovered/Resolved]
  - Hypoaesthesia [Recovered/Resolved]
  - Diarrhoea [Recovered/Resolved]
  - Platelet count decreased [Recovering/Resolving]
  - Platelet count decreased [Recovering/Resolving]
  - Platelet count decreased [Recovering/Resolving]
  - Platelet count decreased [Recovering/Resolving]
